FAERS Safety Report 15413231 (Version 1)
Quarter: 2018Q4

REPORT INFORMATION
  Report Type: Spontaneous
  Country: US (occurrence: US)
  Receive Date: 20180921
  Receipt Date: 20180921
  Transmission Date: 20190204
  Serious: Yes (Hospitalization)
  Sender: FDA-Public Use
  Company Number: US-TAIHO ONCOLOGY  INC-EU-2018-01450

PATIENT
  Sex: Male

DRUGS (1)
  1. LONSURF [Suspect]
     Active Substance: TIPIRACIL HYDROCHLORIDE\TRIFLURIDINE
     Indication: RECTOSIGMOID CANCER
     Dosage: 3 TABS IN THE MORNING AND 4 TABS IN THE AFTERNOON
     Route: 048
     Dates: start: 20180414

REACTIONS (3)
  - Bile duct obstruction [Unknown]
  - Hepatitis [Unknown]
  - Dehydration [Unknown]

NARRATIVE: CASE EVENT DATE: 2018
